FAERS Safety Report 10921724 (Version 1)
Quarter: 2015Q1

REPORT INFORMATION
  Report Type: Spontaneous
  Country: US (occurrence: US)
  Receive Date: 20150317
  Receipt Date: 20150317
  Transmission Date: 20150721
  Serious: No
  Sender: FDA-Public Use
  Company Number: US-SHIRE-US201502222

PATIENT
  Age: 7 Year
  Sex: Male
  Weight: 20.41 kg

DRUGS (1)
  1. ADDERALL XR [Suspect]
     Active Substance: AMPHETAMINE ASPARTATE\AMPHETAMINE SULFATE\DEXTROAMPHETAMINE SACCHARATE\DEXTROAMPHETAMINE SULFATE
     Indication: ATTENTION DEFICIT/HYPERACTIVITY DISORDER
     Dosage: 1 DF(CAPSULE), 1X/DAY:QD
     Route: 048
     Dates: start: 201502, end: 20150309

REACTIONS (7)
  - Crying [Unknown]
  - Aggression [Unknown]
  - Anger [Unknown]
  - Irritability [Unknown]
  - Affect lability [Unknown]
  - Screaming [Unknown]
  - Negativism [Unknown]

NARRATIVE: CASE EVENT DATE: 201503
